FAERS Safety Report 14331381 (Version 2)
Quarter: 2018Q2

REPORT INFORMATION
  Report Type: Spontaneous
  Country: US (occurrence: US)
  Receive Date: 20171228
  Receipt Date: 20180620
  Transmission Date: 20180711
  Serious: Yes (Other)
  Sender: FDA-Public Use
  Company Number: US-ASTRAZENECA-2017SF30963

PATIENT
  Age: 723 Month
  Sex: Male

DRUGS (19)
  1. MIDODRINE [Concomitant]
     Active Substance: MIDODRINE
  2. OXYCONTIN [Concomitant]
     Active Substance: OXYCODONE HYDROCHLORIDE
  3. LEVAQUIN [Concomitant]
     Active Substance: LEVOFLOXACIN
  4. NEXIUM [Suspect]
     Active Substance: ESOMEPRAZOLE MAGNESIUM
     Indication: GASTROOESOPHAGEAL REFLUX DISEASE
     Dosage: 40.0MG UNKNOWN
     Route: 048
     Dates: start: 2001, end: 2015
  5. NEXIUM [Suspect]
     Active Substance: ESOMEPRAZOLE MAGNESIUM
     Indication: GASTROOESOPHAGEAL REFLUX DISEASE
     Dosage: 40.0MG UNKNOWN
     Route: 048
     Dates: start: 20011008
  6. NOVOLOG [Concomitant]
     Active Substance: INSULIN ASPART
  7. TRIMOX [Concomitant]
     Active Substance: AMOXICILLIN
  8. PROPOXYPHENE. [Concomitant]
     Active Substance: PROPOXYPHENE
  9. NAPROXEN. [Concomitant]
     Active Substance: NAPROXEN
  10. RELAFEN [Concomitant]
     Active Substance: NABUMETONE
  11. AMARYL [Concomitant]
     Active Substance: GLIMEPIRIDE
  12. CHLORTHALIDONE. [Concomitant]
     Active Substance: CHLORTHALIDONE
  13. NEXIUM [Suspect]
     Active Substance: ESOMEPRAZOLE MAGNESIUM
     Indication: GASTROOESOPHAGEAL REFLUX DISEASE
     Dosage: UNKNOWN
     Route: 048
     Dates: start: 200110, end: 201508
  14. SIMVASTATIN. [Concomitant]
     Active Substance: SIMVASTATIN
  15. WARFARIN SODIUM. [Concomitant]
     Active Substance: WARFARIN SODIUM
  16. SULFAMETHOXAZOLE [Concomitant]
     Active Substance: SULFAMETHOXAZOLE
  17. TOLBUTAMIDE. [Concomitant]
     Active Substance: TOLBUTAMIDE
  18. LANTUS [Concomitant]
     Active Substance: INSULIN GLARGINE
  19. LISINOPRIL. [Concomitant]
     Active Substance: LISINOPRIL

REACTIONS (2)
  - Chronic kidney disease [Unknown]
  - Renal failure [Unknown]

NARRATIVE: CASE EVENT DATE: 200706
